FAERS Safety Report 9755233 (Version 1)
Quarter: 2013Q4

REPORT INFORMATION
  Report Type: Spontaneous
  Country: US (occurrence: US)
  Receive Date: 20131213
  Receipt Date: 20131213
  Transmission Date: 20140711
  Serious: No
  Sender: FDA-Public Use
  Company Number: US-GLAXOSMITHKLINE-A1014537A

PATIENT
  Age: 77 Year
  Sex: Male

DRUGS (7)
  1. NICODERM CQ CLEAR 21MG [Suspect]
     Indication: EX-TOBACCO USER
  2. NICODERM CQ PATCH, CLEAR [Suspect]
     Indication: EX-TOBACCO USER
  3. NICODERM CQ [Suspect]
     Indication: EX-TOBACCO USER
  4. NICOTINE PATCH UNKNOWN BRAND [Suspect]
     Indication: EX-TOBACCO USER
  5. NICORETTE NICOTINE POLACRILEX LOZENGE [Suspect]
     Indication: EX-TOBACCO USER
  6. UNSPECIFIED INGREDIENTS [Suspect]
     Indication: EX-TOBACCO USER
  7. NICORETTE OTC, UNSPECIFIED [Suspect]
     Indication: PRODUCT USED FOR UNKNOWN INDICATION

REACTIONS (9)
  - Application site reaction [Unknown]
  - Hypersensitivity [Recovered/Resolved]
  - Application site rash [Recovered/Resolved]
  - Application site swelling [Recovered/Resolved]
  - Application site erythema [Recovered/Resolved]
  - Application site papules [Recovered/Resolved]
  - Application site pruritus [Recovered/Resolved]
  - Drug ineffective [Unknown]
  - Abdominal discomfort [Recovered/Resolved]
